FAERS Safety Report 18316748 (Version 1)
Quarter: 2020Q3

REPORT INFORMATION
  Report Type: Report from Study
  Country: US (occurrence: US)
  Receive Date: 20200928
  Receipt Date: 20200928
  Transmission Date: 20201103
  Serious: Yes (Other)
  Sender: FDA-Public Use
  Company Number: US-ADVANZ PHARMA-202009008813

PATIENT

DRUGS (4)
  1. HUMIRA [Suspect]
     Active Substance: ADALIMUMAB
     Dosage: CITRATE FREE
     Route: 058
  2. HUMIRA [Suspect]
     Active Substance: ADALIMUMAB
     Indication: PSORIATIC ARTHROPATHY
     Dosage: UNK
     Route: 058
  3. HYDROXYCHLOROQUINE [Suspect]
     Active Substance: HYDROXYCHLOROQUINE
     Indication: PRODUCT USED FOR UNKNOWN INDICATION
     Dosage: UNK
     Route: 065
  4. METHOTREXATE. [Suspect]
     Active Substance: METHOTREXATE
     Indication: PRODUCT USED FOR UNKNOWN INDICATION
     Dosage: UNK
     Route: 065
     Dates: end: 2020

REACTIONS (8)
  - Pruritus [Recovering/Resolving]
  - Stress [Unknown]
  - White blood cell count decreased [Recovering/Resolving]
  - Eye disorder [Unknown]
  - Corrective lens user [Not Recovered/Not Resolved]
  - Eye pain [Not Recovered/Not Resolved]
  - Dermatitis contact [Recovering/Resolving]
  - Immunodeficiency [Not Recovered/Not Resolved]

NARRATIVE: CASE EVENT DATE: 2020
